FAERS Safety Report 8411684-5 (Version None)
Quarter: 2012Q2

REPORT INFORMATION
  Report Type: 
  Country: None (occurrence: None)
  Receive Date: 20120605
  Receipt Date: 20120531
  Transmission Date: 20120825
  Serious: Yes (Hospitalization)
  Sender: FDA-Public Use
  Company Number: PL-PFIZER INC-2012132152

PATIENT
  Sex: Male

DRUGS (6)
  1. BISOPROLOL [Concomitant]
     Dosage: 5 MG/24H, 2X/DAY; FROM THE SECOND TRIMESTER
     Route: 064
  2. METHYLPREDNISOLONE SODIUM SUCCINATE [Suspect]
     Indication: PROTEINURIA
     Dosage: 4 MG, 1X/DAY; FROM 11TH WEEK AND AT 24TH WEEK
     Route: 064
  3. BETAMETHASONE [Suspect]
     Dosage: 24 MG, UNK
     Route: 064
  4. FUROSEMIDE [Concomitant]
     Dosage: 30-60 MG/D
     Route: 064
  5. ASPIRIN [Concomitant]
     Dosage: UNK MG/24H, UNK
     Route: 064
  6. METHYLDOPA [Concomitant]
     Dosage: 3 X 250 /DMG - 4X500MG/D
     Route: 064

REACTIONS (2)
  - MATERNAL EXPOSURE TIMING UNSPECIFIED [None]
  - SEPSIS NEONATAL [None]
